FAERS Safety Report 9535526 (Version 1)
Quarter: 2013Q3

REPORT INFORMATION
  Report Type: Spontaneous
  Country: US (occurrence: US)
  Receive Date: 20130918
  Receipt Date: 20130918
  Transmission Date: 20140515
  Serious: No
  Sender: FDA-Public Use
  Company Number: US-B.I. PHARMACEUTICALS,INC./RIDGEFIELD-2013-BI-28441BP

PATIENT
  Age: 92 Year
  Sex: Female
  Weight: 45 kg

DRUGS (3)
  1. COMBIVENT [Suspect]
     Indication: CHRONIC OBSTRUCTIVE PULMONARY DISEASE
     Dosage: STRENGTH: 20 MCG / 100 MCG; DAILY DOSE: 80 MCG / 400 MCG
     Route: 055
     Dates: start: 201307
  2. IPRATROPIUM/ALBUTEROL NEBULIZER [Concomitant]
     Indication: CHRONIC OBSTRUCTIVE PULMONARY DISEASE
     Dosage: (INHALATION SOLUTION) STRENGTH: 0.5 MG / 3 MG; DAILY DOSE: 2.0 MG / 12 MG
     Route: 055
     Dates: start: 201307
  3. XARELTO [Concomitant]
     Dosage: 15 MG
     Route: 048
     Dates: start: 201309

REACTIONS (5)
  - Choking [Not Recovered/Not Resolved]
  - Cough [Not Recovered/Not Resolved]
  - Throat irritation [Not Recovered/Not Resolved]
  - Dysphonia [Not Recovered/Not Resolved]
  - Dyspnoea [Not Recovered/Not Resolved]
